FAERS Safety Report 7306778-1 (Version None)
Quarter: 2011Q1

REPORT INFORMATION
  Report Type: 
  Country: None (occurrence: None)
  Receive Date: 20110222
  Receipt Date: 20110208
  Transmission Date: 20110831
  Serious: Yes (Hospitalization)
  Sender: FDA-Public Use
  Company Number: US-MYLANLABS-2011S1002922

PATIENT
  Age: 36 Year
  Sex: Female

DRUGS (4)
  1. LITHIUM [Interacting]
     Indication: BIPOLAR DISORDER
     Route: 065
  2. LINEZOLID [Interacting]
     Route: 065
  3. IMIPRAMINE [Interacting]
     Indication: HEADACHE
     Route: 065
  4. VENLAFAXINE [Suspect]
     Indication: DEPRESSION
     Route: 065

REACTIONS (2)
  - DRUG INTERACTION [None]
  - SEROTONIN SYNDROME [None]
